FAERS Safety Report 14375941 (Version 1)
Quarter: 2018Q1

REPORT INFORMATION
  Report Type: Spontaneous
  Country: BR (occurrence: BR)
  Receive Date: 20180111
  Receipt Date: 20180111
  Transmission Date: 20180509
  Serious: Yes (Other)
  Sender: FDA-Public Use
  Company Number: PHHY2018BR001529

PATIENT
  Sex: Female
  Weight: 59 kg

DRUGS (2)
  1. FORASEQ [Suspect]
     Active Substance: BUDESONIDE\FORMOTEROL FUMARATE
     Indication: LUNG DISORDER
  2. FORASEQ [Suspect]
     Active Substance: BUDESONIDE\FORMOTEROL FUMARATE
     Indication: ASTHMA
     Dosage: UNK UNK, BID
     Route: 055
     Dates: start: 2009

REACTIONS (5)
  - Pain [Recovering/Resolving]
  - Skin disorder [Recovering/Resolving]
  - Cough [Recovering/Resolving]
  - Sinusitis [Unknown]
  - Asphyxia [Recovering/Resolving]
